FAERS Safety Report 17936603 (Version 13)
Quarter: 2021Q2

REPORT INFORMATION
  Report Type: Spontaneous
  Country: US (occurrence: US)
  Receive Date: 20200624
  Receipt Date: 20210514
  Transmission Date: 20210717
  Serious: No
  Sender: FDA-Public Use
  Company Number: US-GLAXOSMITHKLINE-US2020AMR105093

PATIENT
  Sex: Female

DRUGS (9)
  1. ZEJULA [Suspect]
     Active Substance: NIRAPARIB
     Dosage: 100 MG, QD
  2. ZEJULA [Suspect]
     Active Substance: NIRAPARIB
     Dosage: 100 MG, QD
     Dates: start: 2020
  3. ZEJULA [Suspect]
     Active Substance: NIRAPARIB
     Dosage: 100 MG, QD
     Route: 048
  4. ZEJULA [Suspect]
     Active Substance: NIRAPARIB
     Dosage: 100 MG, QD
     Dates: start: 2020
  5. ZEJULA [Suspect]
     Active Substance: NIRAPARIB
     Dosage: 200 MG, QD
     Dates: start: 20200608
  6. ZEJULA [Suspect]
     Active Substance: NIRAPARIB
     Dosage: 200 MG, QD
     Dates: start: 202006
  7. ZEJULA [Suspect]
     Active Substance: NIRAPARIB
     Dosage: 100 MG, QD
  8. ZEJULA [Suspect]
     Active Substance: NIRAPARIB
     Dosage: 100 MG, QD
     Route: 048
  9. ZEJULA [Suspect]
     Active Substance: NIRAPARIB
     Indication: OVARIAN CANCER
     Dosage: 100 MG, QD
     Dates: start: 20200606

REACTIONS (23)
  - Supraventricular tachycardia [Unknown]
  - Feeling abnormal [Unknown]
  - Limb discomfort [Unknown]
  - Peripheral swelling [Not Recovered/Not Resolved]
  - Red blood cell count abnormal [Recovering/Resolving]
  - White blood cell count abnormal [Unknown]
  - Tumour marker increased [Not Recovered/Not Resolved]
  - Abdominal discomfort [Unknown]
  - Oedema [Unknown]
  - Fatigue [Not Recovered/Not Resolved]
  - Gait disturbance [Unknown]
  - Joint swelling [Unknown]
  - Drug ineffective [Unknown]
  - Nausea [Unknown]
  - Condition aggravated [Unknown]
  - Skin burning sensation [Unknown]
  - Anxiety [Unknown]
  - Depression [Unknown]
  - Oropharyngeal pain [Unknown]
  - Localised oedema [Unknown]
  - Off label use [Unknown]
  - Heart rate irregular [Not Recovered/Not Resolved]
  - Oedema peripheral [Not Recovered/Not Resolved]
